FAERS Safety Report 25617839 (Version 1)
Quarter: 2025Q3

REPORT INFORMATION
  Report Type: Report from Study
  Country: US (occurrence: US)
  Receive Date: 20250729
  Receipt Date: 20250729
  Transmission Date: 20251020
  Serious: Yes (Death)
  Sender: BAYER HEALTHCARE PHARMACEUTICALS INC.
  Company Number: US-BAYER-2025A090169

PATIENT
  Age: 45 Year
  Sex: Female

DRUGS (19)
  1. STIVARGA [Suspect]
     Active Substance: REGORAFENIB MONOHYDRATE
     Indication: Colorectal cancer metastatic
     Dosage: 160 MG, QD  FOR 21 DAYS ON, THEN 7 DAYS OFF
     Route: 048
     Dates: start: 20250609, end: 2025
  2. ALBUTEROL SULFATE [Concomitant]
     Active Substance: ALBUTEROL SULFATE
  3. ALPRAZOLAM [Concomitant]
     Active Substance: ALPRAZOLAM
  4. CARAFATE [Concomitant]
     Active Substance: SUCRALFATE
  5. CETIRIZINE [Concomitant]
     Active Substance: CETIRIZINE HYDROCHLORIDE
  6. CYANOCOBALAMIN [Concomitant]
     Active Substance: CYANOCOBALAMIN
  7. DEXAMETHASONE [Concomitant]
     Active Substance: DEXAMETHASONE
  8. FLAXSEED [Concomitant]
     Active Substance: FLAX SEED
  9. ACETAMINOPHEN\HYDROCODONE [Concomitant]
     Active Substance: ACETAMINOPHEN\HYDROCODONE
  10. LIDOCAINE AND PRILOCAINE [Concomitant]
     Active Substance: LIDOCAINE\PRILOCAINE
  11. MAGNESIUM GLYCINATE [Concomitant]
     Active Substance: MAGNESIUM GLYCINATE
  12. MONTELUKAST SODIUM [Concomitant]
     Active Substance: MONTELUKAST SODIUM
  13. OLANZAPINE [Concomitant]
     Active Substance: OLANZAPINE
  14. OMEPRAZOLE [Concomitant]
     Active Substance: OMEPRAZOLE
  15. ONDANSETRON [Concomitant]
     Active Substance: ONDANSETRON
  16. PROCHLORPERAZINE EDISYLATE [Concomitant]
     Active Substance: PROCHLORPERAZINE EDISYLATE
  17. SYNTHROID [Concomitant]
     Active Substance: LEVOTHYROXINE SODIUM
  18. VITAMIN D [Concomitant]
     Active Substance: VITAMIN D NOS
  19. ZINC SULFATE [Concomitant]
     Active Substance: ZINC SULFATE

REACTIONS (2)
  - Death [Fatal]
  - Hypersensitivity [Unknown]

NARRATIVE: CASE EVENT DATE: 20250101
